FAERS Safety Report 18519433 (Version 3)
Quarter: 2021Q2

REPORT INFORMATION
  Report Type: Report from Study
  Country: DE (occurrence: DE)
  Receive Date: 20201118
  Receipt Date: 20210419
  Transmission Date: 20210717
  Serious: Yes (Hospitalization)
  Sender: FDA-Public Use
  Company Number: DE-EISAI MEDICAL RESEARCH-EC-2020-083977

PATIENT
  Age: 49 Year
  Sex: Male

DRUGS (10)
  1. PEMBROLIZUMAB. [Suspect]
     Active Substance: PEMBROLIZUMAB
     Dosage: DOSE AND FREQUENCY UNKNOWN
     Route: 065
     Dates: start: 202003, end: 202003
  2. LENVIMA [Suspect]
     Active Substance: LENVATINIB
     Dosage: DOSE REDUCED FROM 24 MG GRADUALLY TO 14 MG
     Route: 048
     Dates: start: 2017, end: 201710
  3. PEMBROLIZUMAB. [Suspect]
     Active Substance: PEMBROLIZUMAB
     Dosage: DOSE AND FREQUENCY UNKNOWN
     Route: 065
     Dates: start: 202005, end: 202005
  4. LENVIMA [Suspect]
     Active Substance: LENVATINIB
     Indication: THYROID CANCER
     Route: 048
     Dates: start: 201709, end: 2017
  5. LENVIMA [Suspect]
     Active Substance: LENVATINIB
     Route: 048
     Dates: start: 201710
  6. LENVIMA [Suspect]
     Active Substance: LENVATINIB
     Route: 048
     Dates: start: 201802, end: 201906
  7. PEMBROLIZUMAB. [Suspect]
     Active Substance: PEMBROLIZUMAB
     Indication: THYROID CANCER
     Dosage: DOSE AND FREQUENCY UNKNOWN
     Route: 065
     Dates: start: 202002, end: 202002
  8. PEMBROLIZUMAB. [Suspect]
     Active Substance: PEMBROLIZUMAB
     Dosage: DOSE AND FREQUENCY UNKNOWN
     Route: 065
     Dates: start: 202010
  9. LENVIMA [Suspect]
     Active Substance: LENVATINIB
     Route: 048
     Dates: start: 202002
  10. PEMBROLIZUMAB. [Suspect]
     Active Substance: PEMBROLIZUMAB
     Dosage: DOSE AND FREQUENCY UNKNOWN
     Route: 065
     Dates: start: 202004, end: 202004

REACTIONS (10)
  - Disturbance in attention [Unknown]
  - Fatigue [Unknown]
  - Weight decreased [Unknown]
  - General physical health deterioration [Unknown]
  - Vomiting [Unknown]
  - Adrenocorticotropic hormone deficiency [Unknown]
  - Nausea [Unknown]
  - Product use in unapproved indication [Unknown]
  - Febrile infection [Unknown]
  - C-reactive protein increased [Unknown]

NARRATIVE: CASE EVENT DATE: 202008
